FAERS Safety Report 13524539 (Version 2)
Quarter: 2017Q2

REPORT INFORMATION
  Report Type: Report from Study
  Country: US (occurrence: US)
  Receive Date: 20170508
  Receipt Date: 20170522
  Transmission Date: 20170830
  Serious: Yes (Hospitalization)
  Sender: FDA-Public Use
  Company Number: US-ACTELION-A-NJ2017-153517

PATIENT
  Age: 37 Year
  Sex: Female
  Weight: 133.79 kg

DRUGS (6)
  1. OPSUMIT [Suspect]
     Active Substance: MACITENTAN
     Indication: PULMONARY HYPERTENSION
     Dosage: 10 MG, QD
     Route: 048
  2. KCL [Concomitant]
     Active Substance: POTASSIUM CHLORIDE
     Dosage: 100 MG, QID
  3. SILDENAFIL CITRATE. [Concomitant]
     Active Substance: SILDENAFIL CITRATE
  4. LASIX [Concomitant]
     Active Substance: FUROSEMIDE
     Dosage: 40 MG, TID
  5. SPIRONOLACTONE. [Concomitant]
     Active Substance: SPIRONOLACTONE
     Dosage: 25 MG, TID
  6. METOLAZONE. [Concomitant]
     Active Substance: METOLAZONE
     Dosage: 25 MG, BID

REACTIONS (1)
  - Blood potassium abnormal [Unknown]
